FAERS Safety Report 17622787 (Version 1)
Quarter: 2020Q2

REPORT INFORMATION
  Report Type: Spontaneous
  Country: US (occurrence: US)
  Receive Date: 20200403
  Receipt Date: 20200403
  Transmission Date: 20200713
  Serious: No
  Sender: FDA-Public Use
  Company Number: None

PATIENT
  Age: 41 Year
  Sex: Male
  Weight: 128.25 kg

DRUGS (4)
  1. CAPECITABINE 500MG, ORAL 2.0-2.5G [Concomitant]
     Dates: start: 20191107, end: 20191121
  2. PREDNISONE 20MG, ORAL [Concomitant]
     Dates: end: 20191107
  3. CAPECITABINE. [Suspect]
     Active Substance: CAPECITABINE
     Indication: COLON CANCER
     Route: 048
     Dates: start: 20200221, end: 20200403
  4. CAPECITABINE 500MG, ORAL [Concomitant]
     Dates: start: 20191121, end: 20200221

REACTIONS (1)
  - Disease progression [None]

NARRATIVE: CASE EVENT DATE: 20200403
